FAERS Safety Report 10264358 (Version 1)
Quarter: 2014Q2

REPORT INFORMATION
  Report Type: Spontaneous
  Country: US (occurrence: US)
  Receive Date: 20140627
  Receipt Date: 20140627
  Transmission Date: 20141212
  Serious: Yes (Life-Threatening, Hospitalization, Other)
  Sender: FDA-Public Use
  Company Number: US-ROCHE-1422394

PATIENT
  Age: 73 Year
  Sex: Male

DRUGS (4)
  1. RITUXAN [Suspect]
     Indication: CHRONIC LYMPHOCYTIC LEUKAEMIA
     Dosage: 375 PER M2
     Route: 042
     Dates: start: 20140129, end: 20140129
  2. ZOFRAN [Concomitant]
     Indication: CHRONIC LYMPHOCYTIC LEUKAEMIA
     Route: 042
     Dates: start: 20140129
  3. SOLU-MEDROL [Concomitant]
  4. BENDAMUSTINE [Concomitant]
     Indication: CHRONIC LYMPHOCYTIC LEUKAEMIA
     Route: 065
     Dates: start: 20140129, end: 20140130

REACTIONS (5)
  - Serum sickness [Recovered/Resolved]
  - Renal tubular necrosis [Recovered/Resolved]
  - Pyrexia [Recovered/Resolved]
  - Leukopenia [Recovered/Resolved]
  - Sepsis [Recovered/Resolved]
